FAERS Safety Report 12729644 (Version 1)
Quarter: 2016Q3

REPORT INFORMATION
  Report Type: Report from Study
  Country: CO (occurrence: CO)
  Receive Date: 20160909
  Receipt Date: 20160909
  Transmission Date: 20161109
  Serious: Yes (Other)
  Sender: FDA-Public Use
  Company Number: CO-SA-2016SA162482

PATIENT
  Age: 24 Year
  Sex: Male
  Weight: 73 kg

DRUGS (1)
  1. LEMTRADA [Suspect]
     Active Substance: ALEMTUZUMAB
     Indication: MULTIPLE SCLEROSIS
     Route: 042
     Dates: start: 20160504, end: 20160508

REACTIONS (3)
  - Haematocrit increased [Unknown]
  - Leukopenia [Not Recovered/Not Resolved]
  - Haemoglobin increased [Unknown]

NARRATIVE: CASE EVENT DATE: 20160825
